FAERS Safety Report 5795122-7 (Version None)
Quarter: 2008Q2

REPORT INFORMATION
  Report Type: 
  Country: None (occurrence: None)
  Receive Date: 20080630
  Receipt Date: 20080522
  Transmission Date: 20081010
  Serious: No
  Sender: FDA-Public Use
  Company Number: US-BRISTOL-MYERS SQUIBB COMPANY-14159891

PATIENT
  Age: 43 Year
  Sex: Female
  Weight: 82 kg

DRUGS (11)
  1. ORENCIA [Suspect]
     Indication: SYSTEMIC LUPUS ERYTHEMATOSUS
     Dosage: SECOND INFUSION RECEIVED ON 31-MAR-2008.
     Route: 042
     Dates: start: 20080317
  2. ORENCIA [Suspect]
     Indication: ARTHRITIS
     Dosage: SECOND INFUSION RECEIVED ON 31-MAR-2008.
     Route: 042
     Dates: start: 20080317
  3. PLAQUENIL [Concomitant]
  4. LIPITOR [Concomitant]
  5. LISINOPRIL [Concomitant]
  6. PREDNISONE [Concomitant]
  7. ARAVA [Concomitant]
  8. SKELAXIN [Concomitant]
  9. CYMBALTA [Concomitant]
  10. ULTRACET [Concomitant]
     Dosage: 2 DOSAGEFORM = II TABS
  11. AREDIA [Concomitant]

REACTIONS (5)
  - ALOPECIA [None]
  - DRUG INEFFECTIVE [None]
  - HEADACHE [None]
  - NAUSEA [None]
  - VOMITING [None]
